FAERS Safety Report 7490900-0 (Version None)
Quarter: 2011Q2

REPORT INFORMATION
  Report Type: 
  Country: None (occurrence: None)
  Receive Date: 20110517
  Receipt Date: 20110517
  Transmission Date: 20111010
  Serious: Yes (Life-Threatening)
  Sender: FDA-Public Use
  Company Number: None

PATIENT
  Age: 36 Year
  Sex: Female
  Weight: 75.2971 kg

DRUGS (1)
  1. SYNTHROID [Suspect]
     Dosage: 50MCG DAILY BUCCAL
     Route: 002

REACTIONS (7)
  - BLOOD GLUCOSE INCREASED [None]
  - CONSTIPATION [None]
  - WEIGHT LOSS POOR [None]
  - PRODUCT SUBSTITUTION ISSUE [None]
  - HEADACHE [None]
  - FATIGUE [None]
  - DYSPEPSIA [None]
